FAERS Safety Report 4438428-6 (Version None)
Quarter: 2004Q3

REPORT INFORMATION
  Report Type: 
  Country: None (occurrence: None)
  Receive Date: 20040827
  Receipt Date: 20040816
  Transmission Date: 20050211
  Serious: Yes (Other)
  Sender: FDA-Public Use
  Company Number: 2004056522

PATIENT
  Sex: Male
  Weight: 3.44 kg

DRUGS (3)
  1. VIRACEPT [Suspect]
     Indication: HIV INFECTION
     Dosage: PLACENTAL
     Dates: start: 20010101, end: 20010308
  2. ZIDOVUDINE W/LAMIVUDINE (LAMIVUDINE, ZIDOVUDINE) [Suspect]
     Indication: HIV INFECTION
     Dosage: PLACENTAL
     Dates: start: 20010101, end: 20010308
  3. ZIDOVUDINE [Suspect]
     Indication: PROPHYLAXIS AGAINST HIV INFECTION
     Dosage: ORAL
     Route: 048
     Dates: end: 20010101

REACTIONS (6)
  - ABNORMAL BEHAVIOUR [None]
  - CAESAREAN SECTION [None]
  - DRUG EXPOSURE DURING PREGNANCY [None]
  - GLUCOSE-6-PHOSPHATE DEHYDROGENASE DEFICIENCY [None]
  - HYPERLACTACIDAEMIA [None]
  - SPEECH DISORDER [None]
